FAERS Safety Report 10234100 (Version 1)
Quarter: 2014Q2

REPORT INFORMATION
  Report Type: Spontaneous
  Country: US (occurrence: US)
  Receive Date: 20140612
  Receipt Date: 20140612
  Transmission Date: 20141212
  Serious: Yes (Other)
  Sender: FDA-Public Use
  Company Number: US-TAKEDA-2014MPI001619

PATIENT
  Age: 51 Year
  Sex: Male

DRUGS (4)
  1. VELCADE [Suspect]
     Indication: AMYLOIDOSIS
     Route: 042
  2. DEXAMETHASONE [Suspect]
     Indication: AMYLOIDOSIS
     Route: 042
  3. TACROLIMUS [Suspect]
     Indication: AMYLOIDOSIS
     Route: 042
  4. MYCOPHENOLATE MOFETIL [Suspect]
     Indication: AMYLOIDOSIS
     Route: 042

REACTIONS (3)
  - Necrotising fasciitis [Unknown]
  - Meningitis cryptococcal [Unknown]
  - Off label use [Unknown]
